FAERS Safety Report 7583545-5 (Version None)
Quarter: 2011Q2

REPORT INFORMATION
  Report Type: 
  Country: None (occurrence: None)
  Receive Date: 20110630
  Receipt Date: 20110617
  Transmission Date: 20111010
  Serious: Yes (Hospitalization)
  Sender: FDA-Public Use
  Company Number: GB-ROCHE-784013

PATIENT
  Sex: Female
  Weight: 95 kg

DRUGS (14)
  1. MYCOPHENOLATE MEFETIL [Suspect]
     Indication: WEGENER'S GRANULOMATOSIS
     Route: 065
     Dates: start: 20090101
  2. PREDNISOLONE [Concomitant]
     Dosage: ALTERNATE DAYS
  3. OMEPRAZOLE [Concomitant]
  4. CALCICHEW [Concomitant]
  5. PREDNISOLONE [Concomitant]
  6. ONDANSETRON [Concomitant]
  7. METHOTREXATE [Concomitant]
     Dates: start: 20100401
  8. WARFARIN SODIUM [Concomitant]
  9. CANDESARTAN CILEXETIL [Concomitant]
  10. FOLIC ACID [Concomitant]
  11. DAPSONE [Concomitant]
  12. ENALAPRIL MALEATE [Concomitant]
  13. SODIUM BICARBONATE [Concomitant]
  14. DOXYCYCLINE [Concomitant]

REACTIONS (1)
  - WEGENER'S GRANULOMATOSIS [None]
